FAERS Safety Report 25568413 (Version 1)
Quarter: 2025Q3

REPORT INFORMATION
  Report Type: Spontaneous
  Country: US (occurrence: US)
  Receive Date: 20250716
  Receipt Date: 20250716
  Transmission Date: 20251020
  Serious: No
  Sender: NOVO NORDISK
  Company Number: US-NOVOPROD-1274022

PATIENT
  Age: 56 Year
  Sex: Female

DRUGS (3)
  1. OZEMPIC [Suspect]
     Active Substance: SEMAGLUTIDE
     Indication: Product used for unknown indication
     Route: 058
  2. TARPEYO [Suspect]
     Active Substance: BUDESONIDE
     Indication: IgA nephropathy
  3. TARPEYO [Suspect]
     Active Substance: BUDESONIDE
     Indication: Haematuria
     Dates: start: 20230321

REACTIONS (3)
  - Illness [Unknown]
  - Drug interaction [Unknown]
  - Vomiting [Unknown]
